FAERS Safety Report 6091957-4 (Version None)
Quarter: 2009Q1

REPORT INFORMATION
  Report Type: 
  Country: None (occurrence: None)
  Receive Date: 20090225
  Receipt Date: 20081029
  Transmission Date: 20090719
  Serious: Yes (Other)
  Sender: FDA-Public Use
  Company Number: A0754070A

PATIENT
  Age: 32 Year
  Sex: Female

DRUGS (2)
  1. VALTREX [Suspect]
     Dosage: 2G PER DAY
     Route: 048
     Dates: start: 20081024, end: 20081024
  2. NO CONCURRENT MEDICATION [Concomitant]

REACTIONS (3)
  - DYSPNOEA [None]
  - HYPERSENSITIVITY [None]
  - THROAT TIGHTNESS [None]
